FAERS Safety Report 11845945 (Version 6)
Quarter: 2017Q3

REPORT INFORMATION
  Report Type: Spontaneous
  Country: OM (occurrence: OM)
  Receive Date: 20151217
  Receipt Date: 20170821
  Transmission Date: 20171127
  Serious: Yes (Other)
  Sender: FDA-Public Use
  Company Number: OM-PFIZER INC-2015362883

PATIENT
  Age: 11 Year
  Sex: Female

DRUGS (5)
  1. HYDRALAZINE [Interacting]
     Active Substance: HYDRALAZINE HYDROCHLORIDE
     Indication: HYPERTENSION
     Dosage: 1.4  MG/KG, DAILY
  2. AMLODIPINE BESILATE [Suspect]
     Active Substance: AMLODIPINE BESYLATE
     Indication: HYPERTENSION
     Dosage: 5 MG, DAILY (0.25 MG/KG/DAY)
  3. FLUCONAZOLE. [Interacting]
     Active Substance: FLUCONAZOLE
     Indication: PROPHYLAXIS
     Dosage: UNK
  4. MAGNESIUM [Interacting]
     Active Substance: MAGNESIUM
     Dosage: UNK
  5. CICLOSPORIN [Interacting]
     Active Substance: CYCLOSPORINE
     Dosage: UNK

REACTIONS (5)
  - Weight increased [Recovered/Resolved]
  - Drug interaction [Unknown]
  - Generalised oedema [Recovered/Resolved]
  - Pleural effusion [Unknown]
  - Ascites [Unknown]
